FAERS Safety Report 7072945-8 (Version None)
Quarter: 2010Q4

REPORT INFORMATION
  Report Type: 
  Country: None (occurrence: None)
  Receive Date: 20101029
  Receipt Date: 20101020
  Transmission Date: 20110411
  Serious: Yes (Other)
  Sender: FDA-Public Use
  Company Number: FR-KINGPHARMUSA00001-K201001305

PATIENT
  Age: 70 Year
  Sex: Female

DRUGS (2)
  1. ALTACE [Suspect]
     Indication: HYPERTENSION
     Dosage: 1.25 MG, QD
     Route: 048
     Dates: start: 20070101, end: 20100601
  2. TETANUS VACCINE [Concomitant]
     Dosage: UNK
     Dates: start: 20091101, end: 20091101

REACTIONS (6)
  - COUGH [None]
  - DYSPNOEA [None]
  - HEPATIC ENZYME INCREASED [None]
  - LYMPHADENOPATHY [None]
  - METASTATIC MALIGNANT MELANOMA [None]
  - MUSCLE SPASMS [None]
